FAERS Safety Report 8811416 (Version 1)
Quarter: 2012Q4

REPORT INFORMATION
  Report Type: Spontaneous
  Country: US (occurrence: None)
  Receive Date: 20120925
  Receipt Date: 20120925
  Transmission Date: 20130627
  Serious: Yes (Life-Threatening)
  Sender: FDA-Public Use
  Company Number: None

PATIENT
  Age: 69 Year
  Sex: Female
  Weight: 180 kg

DRUGS (20)
  1. SOTALOL [Suspect]
     Indication: ATRIAL FIBRILLATION
     Dosage: 240mg BID po
     Route: 048
     Dates: start: 20120822, end: 20120824
  2. IPRATROPIUM/ALBUTEROL NEBS [Concomitant]
  3. DULOXETINE [Concomitant]
  4. GUAIFENESIN [Concomitant]
  5. BUPROPION [Concomitant]
  6. HYDRALAZINE [Concomitant]
  7. ARIPIPRAZOLE [Concomitant]
  8. ACETAMINOPHEN [Concomitant]
  9. ONDANSETRON [Concomitant]
  10. PROMETHAZINE [Concomitant]
  11. ENALAPRILAT [Concomitant]
  12. AMLODIPINE [Concomitant]
  13. FUROSEMIDE [Concomitant]
  14. PIPERACILLIN/TAZOBACTAM [Concomitant]
  15. LINEZOLID [Concomitant]
  16. DILTIAZEM [Concomitant]
  17. LEVOTHYROXINE [Concomitant]
  18. NYSTATIN [Concomitant]
  19. PANTOPRAZOLE [Concomitant]
  20. FAMOTIDINE [Concomitant]

REACTIONS (2)
  - Cardiac arrest [None]
  - Torsade de pointes [None]
